FAERS Safety Report 16510917 (Version 1)
Quarter: 2019Q3

REPORT INFORMATION
  Report Type: Spontaneous
  Country: US (occurrence: US)
  Receive Date: 20190702
  Receipt Date: 20190702
  Transmission Date: 20191004
  Serious: No
  Sender: FDA-Public Use
  Company Number: US-ACCORD-071380

PATIENT
  Sex: Male

DRUGS (1)
  1. ALLOPURINOL ACCORD [Suspect]
     Active Substance: ALLOPURINOL
     Indication: RENAL LITHIASIS PROPHYLAXIS
     Dosage: STRENGTH: 300 MG, ONE TABLET AT NIGHT

REACTIONS (2)
  - Constipation [Unknown]
  - Product substitution issue [Unknown]
